FAERS Safety Report 9732170 (Version 6)
Quarter: 2014Q2

REPORT INFORMATION
  Report Type: Report from Study
  Country: TR (occurrence: TR)
  Receive Date: 20131204
  Receipt Date: 20140613
  Transmission Date: 20141212
  Serious: Yes (Other)
  Sender: FDA-Public Use
  Company Number: TR-ABBVIE-13P-161-1161407-00

PATIENT
  Age: 43 Year
  Sex: Male
  Weight: 107 kg

DRUGS (3)
  1. HUMIRA [Suspect]
     Indication: PSORIASIS
     Route: 058
     Dates: start: 20120305, end: 201310
  2. HUMIRA [Suspect]
     Dates: end: 201404
  3. ADALAT [Concomitant]
     Indication: HYPERTENSION
     Route: 048

REACTIONS (3)
  - Hepatic enzyme increased [Recovered/Resolved]
  - Proteinuria [Recovered/Resolved]
  - Drug ineffective [Unknown]
